FAERS Safety Report 7012282-0 (Version None)
Quarter: 2010Q3

REPORT INFORMATION
  Report Type: 
  Country: None (occurrence: None)
  Receive Date: 20100924
  Receipt Date: 20100916
  Transmission Date: 20110219
  Serious: Yes (Hospitalization)
  Sender: FDA-Public Use
  Company Number: US-ABBOTT-10P-163-0671429-00

PATIENT

DRUGS (4)
  1. HUMIRA [Suspect]
     Indication: PSORIATIC ARTHROPATHY
     Dates: start: 20091201
  2. CYCLOSPORINE [Concomitant]
     Indication: PRODUCT USED FOR UNKNOWN INDICATION
     Dosage: TOOK FOR THREE DAYS ONLY
     Dates: start: 20100801, end: 20100801
  3. UNKNOWN TOPICAL CREAMS [Concomitant]
     Indication: PSORIASIS
  4. UNKNOWN ANTIINFLAMMATORIES [Concomitant]
     Indication: ARTHRITIS

REACTIONS (2)
  - ARTHROPOD BITE [None]
  - NOCARDIOSIS [None]
